FAERS Safety Report 17213726 (Version 2)
Quarter: 2020Q1

REPORT INFORMATION
  Report Type: Spontaneous
  Country: US (occurrence: US)
  Receive Date: 20191230
  Receipt Date: 20200106
  Transmission Date: 20200409
  Serious: Yes (Other)
  Sender: FDA-Public Use
  Company Number: US-PFIZER INC-2019555218

PATIENT
  Sex: Male

DRUGS (15)
  1. ZIPRASIDONE HCL [Suspect]
     Active Substance: ZIPRASIDONE HYDROCHLORIDE
     Indication: AGGRESSION
     Dosage: UNK (HEFTY DOSES)
  2. ZIPRASIDONE HCL [Suspect]
     Active Substance: ZIPRASIDONE HYDROCHLORIDE
     Indication: TRISOMY 21
  3. CLONAZEPAM. [Suspect]
     Active Substance: CLONAZEPAM
     Indication: ANXIETY
  4. LAMOTRIGINE. [Suspect]
     Active Substance: LAMOTRIGINE
     Indication: MOOD ALTERED
     Dosage: UNK (HEFTY DOSES)
  5. LAMOTRIGINE. [Suspect]
     Active Substance: LAMOTRIGINE
     Indication: TRISOMY 21
  6. VENLAFAXINE HCL [Suspect]
     Active Substance: VENLAFAXINE HYDROCHLORIDE
     Indication: ANXIETY
  7. CLONAZEPAM. [Suspect]
     Active Substance: CLONAZEPAM
     Indication: TRISOMY 21
  8. CLONAZEPAM. [Suspect]
     Active Substance: CLONAZEPAM
     Indication: AGGRESSION
  9. VENLAFAXINE HCL [Suspect]
     Active Substance: VENLAFAXINE HYDROCHLORIDE
     Indication: TRISOMY 21
  10. DIAZEPAM. [Suspect]
     Active Substance: DIAZEPAM
     Indication: AGGRESSION
     Dosage: UNK (HEFTY DOSES)
  11. DIAZEPAM. [Suspect]
     Active Substance: DIAZEPAM
     Indication: TRISOMY 21
  12. ZIPRASIDONE HCL [Suspect]
     Active Substance: ZIPRASIDONE HYDROCHLORIDE
     Indication: ANXIETY
  13. CLONAZEPAM. [Suspect]
     Active Substance: CLONAZEPAM
     Indication: MOOD ALTERED
     Dosage: UNK (HEFTY DOSES)
  14. VENLAFAXINE HCL [Suspect]
     Active Substance: VENLAFAXINE HYDROCHLORIDE
     Indication: DEPRESSION
     Dosage: UNK (HEFTY DOSES)
  15. DIAZEPAM. [Suspect]
     Active Substance: DIAZEPAM
     Indication: ANXIETY

REACTIONS (3)
  - Weight increased [Recovering/Resolving]
  - Blunted affect [Recovering/Resolving]
  - Coeliac disease [Recovering/Resolving]
